FAERS Safety Report 8342983-3 (Version None)
Quarter: 2012Q2

REPORT INFORMATION
  Report Type: 
  Country: None (occurrence: None)
  Receive Date: 20120508
  Receipt Date: 20120427
  Transmission Date: 20120825
  Serious: Yes (Hospitalization, Other)
  Sender: FDA-Public Use
  Company Number: PHHY2012JP030801

PATIENT
  Sex: Female
  Weight: 46 kg

DRUGS (11)
  1. MAGMITT KENEI [Concomitant]
     Indication: CONSTIPATION
     Dosage: 660 MG, UNK
     Route: 048
     Dates: start: 20110705, end: 20120425
  2. EXELON [Suspect]
     Dosage: 13.5 MG, DAILY
     Route: 062
     Dates: start: 20120112, end: 20120223
  3. MEMANTINE HYDROCHLORIDE [Concomitant]
     Indication: DEMENTIA ALZHEIMER'S TYPE
     Dosage: 20 MG, UNK
     Route: 048
  4. GRAMALIL [Concomitant]
     Dosage: 75 MG, UNK
     Route: 048
  5. EXELON [Suspect]
     Indication: DEMENTIA ALZHEIMER'S TYPE
     Dosage: 4.5 MG, DAILY
     Route: 062
     Dates: start: 20111215, end: 20111222
  6. EXELON [Suspect]
     Dosage: 9 MG, DAILY
     Route: 062
     Dates: start: 20111223, end: 20120111
  7. FAMOTIDINE [Concomitant]
     Dosage: 20 MG, UNK
     Route: 048
     Dates: start: 20101001, end: 20120425
  8. EXELON [Suspect]
     Dosage: 18 MG, DAILY
     Route: 062
     Dates: start: 20120223, end: 20120403
  9. LIPITOR [Concomitant]
     Indication: DYSLIPIDAEMIA
     Dosage: 5 MG, UNK
     Route: 048
     Dates: start: 20101001, end: 20120425
  10. ADENOSINE [Concomitant]
     Indication: DEMENTIA ALZHEIMER'S TYPE
     Dosage: 120 MG, UNK
     Route: 048
     Dates: start: 20120229, end: 20120425
  11. YOKUKAN-SAN [Suspect]
     Indication: DEMENTIA ALZHEIMER'S TYPE
     Dosage: 5 MG, UNK
     Route: 048
     Dates: start: 20120215, end: 20120321

REACTIONS (12)
  - DEMENTIA ALZHEIMER'S TYPE [None]
  - VOMITING [None]
  - BLOOD PRESSURE INCREASED [None]
  - CEREBELLAR ATROPHY [None]
  - DIARRHOEA [None]
  - LOSS OF CONSCIOUSNESS [None]
  - BLOOD PRESSURE DECREASED [None]
  - BODY TEMPERATURE INCREASED [None]
  - APPLICATION SITE RASH [None]
  - CRYING [None]
  - CONVULSION [None]
  - APPLICATION SITE PRURITUS [None]
